FAERS Safety Report 16018243 (Version 1)
Quarter: 2019Q1

REPORT INFORMATION
  Report Type: Spontaneous
  Country: US (occurrence: US)
  Receive Date: 20190202
  Receipt Date: 20190202
  Transmission Date: 20190418
  Serious: No
  Sender: FDA-Public Use
  Company Number: None

PATIENT

DRUGS (1)
  1. CISPLATIN. [Suspect]
     Active Substance: CISPLATIN
     Dates: end: 20190109

REACTIONS (3)
  - Odynophagia [None]
  - Skin reaction [None]
  - Mucosal inflammation [None]

NARRATIVE: CASE EVENT DATE: 20190122
